FAERS Safety Report 18595826 (Version 1)
Quarter: 2020Q4

REPORT INFORMATION
  Report Type: Spontaneous
  Country: US (occurrence: US)
  Receive Date: 20201109
  Receipt Date: 20201109
  Transmission Date: 20210114
  Serious: No
  Sender: FDA-Public Use
  Company Number: None

PATIENT
  Age: 7 Decade
  Sex: Female

DRUGS (4)
  1. CEFTRIAXONE. [Suspect]
     Active Substance: CEFTRIAXONE
     Indication: COVID-19
     Dosage: ?          OTHER ROUTE:IV?
     Dates: start: 2020
  2. CLARITHROMYCIN. [Suspect]
     Active Substance: CLARITHROMYCIN
     Dosage: ?          OTHER ROUTE:IV?
  3. MEROPENEM. [Suspect]
     Active Substance: MEROPENEM
     Dosage: ?          OTHER ROUTE:IV?
  4. LINEZOLID. [Suspect]
     Active Substance: LINEZOLID
     Dosage: ?          OTHER ROUTE:IV?

REACTIONS (1)
  - Product use in unapproved indication [None]
